FAERS Safety Report 8186744-7 (Version None)
Quarter: 2012Q1

REPORT INFORMATION
  Report Type: 
  Country: None (occurrence: None)
  Receive Date: 20120301
  Receipt Date: 20120217
  Transmission Date: 20120608
  Serious: Yes (Death, Hospitalization)
  Sender: FDA-Public Use
  Company Number: DSA_48634_2011

PATIENT
  Age: 50 Year
  Sex: Male

DRUGS (2)
  1. DILTIAZEM HYDROCHLORIDE [Suspect]
     Indication: PRODUCT USED FOR UNKNOWN INDICATION
     Dosage: 0.8 G, ONCE ORAL
     Route: 048
  2. OXCARBAZEPINE [Suspect]
     Indication: PRODUCT USED FOR UNKNOWN INDICATION
     Dosage: 3.6 G, ONCE ORAL
     Route: 048

REACTIONS (21)
  - ATRIOVENTRICULAR BLOCK FIRST DEGREE [None]
  - COMPARTMENT SYNDROME [None]
  - ASPARTATE AMINOTRANSFERASE INCREASED [None]
  - HYPERHIDROSIS [None]
  - TACHYPNOEA [None]
  - HYPOTENSION [None]
  - ACIDOSIS [None]
  - PULMONARY OEDEMA [None]
  - HAEMODIALYSIS [None]
  - HYPOKALAEMIA [None]
  - DIZZINESS [None]
  - ABDOMINAL PAIN UPPER [None]
  - ANION GAP INCREASED [None]
  - NERVOUS SYSTEM DISORDER [None]
  - ALANINE AMINOTRANSFERASE INCREASED [None]
  - COMPLETED SUICIDE [None]
  - BRADYCARDIA [None]
  - HYPERGLYCAEMIA [None]
  - PLEURAL EFFUSION [None]
  - MULTIPLE DRUG OVERDOSE INTENTIONAL [None]
  - CARDIAC DISORDER [None]
